FAERS Safety Report 21290053 (Version 4)
Quarter: 2023Q1

REPORT INFORMATION
  Report Type: Spontaneous
  Country: US (occurrence: US)
  Receive Date: 20220902
  Receipt Date: 20230330
  Transmission Date: 20230418
  Serious: Yes (Other)
  Sender: FDA-Public Use
  Company Number: US-UCBSA-2022052115

PATIENT
  Age: 14 Year
  Sex: Female

DRUGS (5)
  1. FINTEPLA [Suspect]
     Active Substance: FENFLURAMINE
     Indication: Product used for unknown indication
     Dosage: 5.8 MILLILITER, 2X/DAY (BID)
     Dates: start: 2022
  2. FINTEPLA [Suspect]
     Active Substance: FENFLURAMINE
     Dosage: 5.8 MILLILITER, 2X/DAY (BID)
  3. FINTEPLA [Suspect]
     Active Substance: FENFLURAMINE
     Dosage: 5.8 MILLILITER, 2X/DAY (BID)
  4. FINTEPLA [Suspect]
     Active Substance: FENFLURAMINE
     Dosage: 5.8 MILLILITER, 2X/DAY (BID)
  5. DEPAKOTE [Concomitant]
     Active Substance: DIVALPROEX SODIUM
     Indication: Seizure
     Route: 065

REACTIONS (6)
  - Generalised tonic-clonic seizure [Recovered/Resolved]
  - Seizure [Not Recovered/Not Resolved]
  - Influenza [Not Recovered/Not Resolved]
  - Lethargy [Recovered/Resolved]
  - Fatigue [Recovered/Resolved]
  - Cough [Recovered/Resolved]

NARRATIVE: CASE EVENT DATE: 20220728
